FAERS Safety Report 6606520-3 (Version None)
Quarter: 2010Q1

REPORT INFORMATION
  Report Type: 
  Country: None (occurrence: None)
  Receive Date: 20100226
  Receipt Date: 20100216
  Transmission Date: 20100710
  Serious: Yes (Disabling)
  Sender: FDA-Public Use
  Company Number: US-MYLANLABS-2010S1000317

PATIENT
  Age: 58 Year
  Sex: Female
  Weight: 77.11 kg

DRUGS (4)
  1. ALBUTEROL SULFATE [Suspect]
     Indication: ASTHMA
     Dosage: EVERY FOUR HOURS AS NEEDED
     Route: 055
     Dates: end: 20091101
  2. ALBUTEROL SULFATE [Suspect]
     Dosage: EVERY FOUR HOURS AS NEEDED
     Route: 055
     Dates: end: 20091101
  3. CLONIDINE [Concomitant]
     Indication: BLOOD PRESSURE INCREASED
     Route: 048
     Dates: start: 19940101
  4. VITAMINS [Concomitant]
     Indication: SUPPLEMENTATION THERAPY
     Route: 048

REACTIONS (10)
  - BURNING SENSATION [None]
  - CATARACT [None]
  - DRUG INEFFECTIVE [None]
  - EYE IRRITATION [None]
  - INSOMNIA [None]
  - ORAL DISCOMFORT [None]
  - OROPHARYNGEAL PAIN [None]
  - RESPIRATORY DISTRESS [None]
  - THROAT IRRITATION [None]
  - WEIGHT INCREASED [None]
